FAERS Safety Report 5167560-7 (Version None)
Quarter: 2006Q4

REPORT INFORMATION
  Report Type: 
  Country: None (occurrence: None)
  Receive Date: 20060830
  Receipt Date: 20060501
  Transmission Date: 20070319
  Serious: Yes (Other)
  Sender: FDA-Public Use
  Company Number: 202688

PATIENT
  Sex: Female
  Weight: 96.1 kg

DRUGS (8)
  1. XOLAIR [Suspect]
     Indication: ASTHMA
     Dosage: SEE IMAGE
     Dates: start: 20030930
  2. PREDNISONE TAB [Concomitant]
  3. CYCLOSPORINE [Concomitant]
  4. ZYRTEC [Concomitant]
  5. PULMICORT (BUDESONIDE) INHALATION VAPOUR, SOLUTION, 2.5 ML [Concomitant]
  6. SINGULAIR [Concomitant]
  7. IBUPROFEN [Concomitant]
  8. FEXOFENADINE (FEXOFENADINE HYDROCHLORIDE) [Concomitant]

REACTIONS (3)
  - HYPERSENSITIVITY [None]
  - PRURITUS [None]
  - RASH ERYTHEMATOUS [None]
